FAERS Safety Report 7656012-8 (Version None)
Quarter: 2011Q3

REPORT INFORMATION
  Report Type: 
  Country: None (occurrence: None)
  Receive Date: 20110804
  Receipt Date: 20110726
  Transmission Date: 20111222
  Serious: Yes (Hospitalization, Other)
  Sender: FDA-Public Use
  Company Number: US-NAPPMUNDI-USA-2011-0072554

PATIENT
  Sex: Male

DRUGS (3)
  1. HEROIN [Suspect]
     Indication: DRUG ABUSE
  2. COCAINE [Suspect]
     Indication: DRUG ABUSE
  3. OXYCONTIN [Suspect]
     Indication: DRUG ABUSE

REACTIONS (12)
  - PAIN [None]
  - EUPHORIC MOOD [None]
  - DRUG DEPENDENCE [None]
  - PHYSICAL ASSAULT [None]
  - SUBSTANCE ABUSE [None]
  - RENAL IMPAIRMENT [None]
  - DRUG WITHDRAWAL SYNDROME [None]
  - INSOMNIA [None]
  - WEIGHT DECREASED [None]
  - DEPRESSED LEVEL OF CONSCIOUSNESS [None]
  - UNEVALUABLE EVENT [None]
  - SYNCOPE [None]
